FAERS Safety Report 4498927-8 (Version None)
Quarter: 2004Q4

REPORT INFORMATION
  Report Type: 
  Country: None (occurrence: None)
  Receive Date: 20041108
  Receipt Date: 20041022
  Transmission Date: 20050328
  Serious: Yes (Hospitalization)
  Sender: FDA-Public Use
  Company Number: 2004-BP-06499NB

PATIENT
  Age: 79 Year
  Sex: Male

DRUGS (11)
  1. BI-SIFROL TABLETS (PRAMIPEXOLE DIHYDROCHLORIDE) (TA) [Suspect]
     Indication: PARKINSON'S DISEASE
     Dosage: 0.5 MG (NR) PO
     Route: 048
     Dates: start: 20040602, end: 20040720
  2. CARBIDOPA AND LEVODOPA [Suspect]
     Indication: PARKINSON'S DISEASE
     Dosage: 400 MG (NR) PO
     Route: 048
     Dates: start: 20010301, end: 20040727
  3. SYMMETREL [Suspect]
     Indication: PARKINSON'S DISEASE
     Dosage: 150 MG (NR) PO
     Route: 048
     Dates: start: 20010524, end: 20040630
  4. OMEPRAZOLE [Concomitant]
  5. GASMOTIN (MOSAPRIDE CITRATE) (TA) [Concomitant]
  6. CYANOCOBALAMIN [Concomitant]
  7. CEROCRAL (IFENPRODIL TARTRATE) (TA) [Concomitant]
  8. MAGNESIUM OXIDE (MAGNESIUM OXIDE) (GR) [Concomitant]
  9. FRANDOL (ISOSORBIDE DINITRATE) (TA) [Concomitant]
  10. FLUITRAN (TRICHLORMETHIAZIDE) (TA) [Concomitant]
  11. ADALAT L (NIFEDIPINE) (TAD) [Concomitant]

REACTIONS (3)
  - DELIRIUM [None]
  - HALLUCINATION [None]
  - MARKEDLY REDUCED DIETARY INTAKE [None]
